FAERS Safety Report 21375735 (Version 1)
Quarter: 2022Q3

REPORT INFORMATION
  Report Type: Spontaneous
  Country: US (occurrence: None)
  Receive Date: 20220923
  Receipt Date: 20220923
  Transmission Date: 20221027
  Serious: Yes (Other)
  Sender: FDA-Public Use
  Company Number: None

PATIENT
  Age: 21 Year
  Sex: Female

DRUGS (1)
  1. LATUDA [Suspect]
     Active Substance: LURASIDONE HYDROCHLORIDE
     Indication: Bipolar II disorder
     Dosage: FREQUENCY : DAILY;?
     Route: 048
     Dates: start: 20220826, end: 20220920

REACTIONS (1)
  - Enuresis [None]

NARRATIVE: CASE EVENT DATE: 20220918
